FAERS Safety Report 10462724 (Version 1)
Quarter: 2014Q3

REPORT INFORMATION
  Report Type: Spontaneous
  Country: DE (occurrence: DE)
  Receive Date: 20140918
  Receipt Date: 20140918
  Transmission Date: 20150326
  Serious: Yes (Death)
  Sender: FDA-Public Use
  Company Number: DE-TEVA-508417GER

PATIENT
  Sex: Female

DRUGS (9)
  1. DOXEPIN 20 [Interacting]
     Active Substance: DOXEPIN
     Route: 065
  2. SERTRALIN 100 [Interacting]
     Active Substance: SERTRALINE HYDROCHLORIDE
  3. LYRICA [Interacting]
     Active Substance: PREGABALIN
  4. OMEPRAZOL 20 [Interacting]
     Active Substance: OMEPRAZOLE
     Route: 065
  5. AGOMELATIN 25 [Interacting]
     Active Substance: AGOMELATINE
     Route: 065
  6. ATOSIL [Interacting]
     Active Substance: PROMETHAZINE HYDROCHLORIDE
     Route: 065
  7. L-THYROXIN 75 [Interacting]
     Active Substance: LEVOTHYROXINE
     Route: 065
  8. OLANZAPINE 2.5 MG TABLETS [Interacting]
     Active Substance: OLANZAPINE
     Route: 065
  9. ZOPICLONE [Suspect]
     Active Substance: ZOPICLONE
     Dosage: 300
     Route: 065

REACTIONS (3)
  - Overdose [Fatal]
  - Drug interaction [Fatal]
  - Completed suicide [Fatal]

NARRATIVE: CASE EVENT DATE: 20130516
